FAERS Safety Report 21228500 (Version 1)
Quarter: 2022Q3

REPORT INFORMATION
  Report Type: Spontaneous
  Country: BR (occurrence: BR)
  Receive Date: 20220818
  Receipt Date: 20220818
  Transmission Date: 20221027
  Serious: Yes (Other)
  Sender: FDA-Public Use
  Company Number: BR-BAYER-2022P010835

PATIENT
  Age: 62 Year
  Sex: Male

DRUGS (1)
  1. EYLEA [Suspect]
     Active Substance: AFLIBERCEPT
     Indication: Diabetic retinal oedema
     Dosage: 1 DF, ONCE (OD), SOLUTION FOR INJECTION
     Route: 031

REACTIONS (13)
  - Scleritis [Unknown]
  - Anterior chamber disorder [Recovering/Resolving]
  - Retinal vasculitis [Recovering/Resolving]
  - Blindness [Not Recovered/Not Resolved]
  - Macular degeneration [Unknown]
  - Retinal degeneration [Unknown]
  - Macular thickening [Unknown]
  - Diabetic retinopathy [Unknown]
  - Hypopyon [Recovering/Resolving]
  - Tractional retinal detachment [Unknown]
  - Eye inflammation [Unknown]
  - Eye pain [Unknown]
  - Vision blurred [Unknown]

NARRATIVE: CASE EVENT DATE: 20220513
